FAERS Safety Report 7687582-1 (Version None)
Quarter: 2011Q3

REPORT INFORMATION
  Report Type: 
  Country: None (occurrence: None)
  Receive Date: 20110817
  Receipt Date: 20110809
  Transmission Date: 20111222
  Serious: Yes (Death, Other)
  Sender: FDA-Public Use
  Company Number: US-BAYER-2011-018421

PATIENT
  Age: 63 Year
  Sex: Female
  Weight: 50 kg

DRUGS (23)
  1. TRASYLOL [Suspect]
     Indication: MITRAL VALVE DISEASE MIXED
  2. ETOMIDATE [Concomitant]
     Indication: PRODUCT USED FOR UNKNOWN INDICATION
     Dosage: 10 MG, UNK
     Route: 042
     Dates: start: 20060809
  3. PHENYLEPHRINE HCL [Concomitant]
     Indication: PRODUCT USED FOR UNKNOWN INDICATION
     Dosage: 100 MCG
     Route: 042
     Dates: start: 20060809
  4. HEPARIN [Concomitant]
     Indication: PRODUCT USED FOR UNKNOWN INDICATION
     Dosage: 20 ML, UNK
     Route: 042
     Dates: start: 20060809
  5. VERSED [Concomitant]
     Indication: PRODUCT USED FOR UNKNOWN INDICATION
     Dosage: 0.5 MG, UNK
     Route: 042
     Dates: start: 20060809
  6. MANNITOL [Concomitant]
     Indication: PRODUCT USED FOR UNKNOWN INDICATION
     Dosage: 25 G, UNK
     Route: 042
     Dates: start: 20060809
  7. FORANE [Concomitant]
     Indication: PRODUCT USED FOR UNKNOWN INDICATION
     Dosage: UNK
     Dates: start: 20060809
  8. PROTAMINE [Concomitant]
     Indication: PRODUCT USED FOR UNKNOWN INDICATION
     Dosage: 200 MG, UNK
     Route: 042
     Dates: start: 20060809
  9. INS [INSULIN] [Concomitant]
     Indication: PRODUCT USED FOR UNKNOWN INDICATION
     Dosage: 30 U, UNK
     Route: 042
     Dates: start: 20060809
  10. ALBUMEN [Concomitant]
  11. HEPARIN [Concomitant]
     Dosage: 5000 UNITS EVERY 6 HOURS
     Route: 058
  12. LISINOPRIL [Concomitant]
     Dosage: 40 MG, UNK
  13. TRASYLOL [Suspect]
     Indication: CENTRAL VENOUS CATHETERISATION
     Dosage: 400 ML THEN 50ML/HR
     Route: 042
     Dates: start: 20060809, end: 20060809
  14. TRASYLOL [Suspect]
     Indication: MITRAL VALVE REPLACEMENT
  15. ANCEF [Concomitant]
     Indication: PRODUCT USED FOR UNKNOWN INDICATION
     Dosage: 1 G, UNK
     Dates: start: 20060809
  16. CEFAZOLIN [Concomitant]
     Indication: PRODUCT USED FOR UNKNOWN INDICATION
     Dosage: 2 G, UNK
     Route: 042
     Dates: start: 20060809
  17. WARFARIN SODIUM [Concomitant]
     Dosage: 7.5 MG, QD
  18. VERAPAMIL [Concomitant]
  19. LIDOCAINE [Concomitant]
     Indication: PRODUCT USED FOR UNKNOWN INDICATION
     Dosage: 100 MG, UNK
     Route: 042
     Dates: start: 20060809
  20. FENTANYL [Concomitant]
     Indication: PRODUCT USED FOR UNKNOWN INDICATION
     Dosage: 16 MG, UNK
     Route: 042
     Dates: start: 20060809
  21. FUROSEMIDE [Concomitant]
  22. HYDROXYZINE [Concomitant]
  23. METOPROLOL TARTRATE [Concomitant]

REACTIONS (7)
  - RENAL FAILURE [None]
  - RENAL FAILURE ACUTE [None]
  - DEPRESSION [None]
  - EMOTIONAL DISTRESS [None]
  - INJURY [None]
  - DEATH [None]
  - PAIN [None]
